FAERS Safety Report 6551395-4 (Version None)
Quarter: 2010Q1

REPORT INFORMATION
  Report Type: 
  Country: None (occurrence: None)
  Receive Date: 20100126
  Receipt Date: 20100112
  Transmission Date: 20100710
  Serious: Yes (Hospitalization)
  Sender: FDA-Public Use
  Company Number: JP-ROCHE-611714

PATIENT
  Sex: Female
  Weight: 38 kg

DRUGS (19)
  1. TOCILIZUMAB [Suspect]
     Indication: JUVENILE ARTHRITIS
     Route: 041
     Dates: start: 20080828, end: 20080828
  2. TOCILIZUMAB [Suspect]
     Route: 041
     Dates: start: 20080925, end: 20080925
  3. TOCILIZUMAB [Suspect]
     Route: 041
     Dates: start: 20081023, end: 20081023
  4. TOCILIZUMAB [Suspect]
     Route: 041
     Dates: start: 20081120, end: 20081120
  5. TOCILIZUMAB [Suspect]
     Route: 041
     Dates: start: 20081218, end: 20081218
  6. TOCILIZUMAB [Suspect]
     Route: 041
     Dates: start: 20090115, end: 20090115
  7. TOCILIZUMAB [Suspect]
     Route: 041
     Dates: start: 20090212
  8. RHEUMATREX [Concomitant]
     Route: 048
  9. PREDNISOLONE [Concomitant]
     Dosage: FORM: ORAL FORMULATION (NOT OTHERWISE SPECIFIED)
     Route: 048
     Dates: end: 20080618
  10. PREDNISOLONE [Concomitant]
     Route: 048
     Dates: start: 20080619, end: 20081009
  11. PREDNISOLONE [Concomitant]
     Route: 048
     Dates: start: 20081010, end: 20081120
  12. PREDNISOLONE [Concomitant]
     Route: 048
     Dates: start: 20081121, end: 20081218
  13. PREDNISOLONE [Concomitant]
     Route: 048
     Dates: start: 20081219
  14. NAIXAN [Concomitant]
     Dosage: FORM: ORAL FORMULATION (NOT OTHERWISE SPECIFIED)
     Route: 048
     Dates: end: 20081218
  15. NAIXAN [Concomitant]
     Route: 048
     Dates: start: 20081219, end: 20090115
  16. NAIXAN [Concomitant]
     Route: 048
     Dates: start: 20090116
  17. MUCOSTA [Concomitant]
     Dosage: FORM: ORAL NOT OTHERWISE SPECIFIED
     Route: 048
     Dates: end: 20090115
  18. MUCOSTA [Concomitant]
     Route: 048
     Dates: start: 20090116
  19. LEUCOVORIN CALCIUM [Concomitant]
     Route: 048

REACTIONS (3)
  - ENTEROCOLITIS [None]
  - HEPATIC FUNCTION ABNORMAL [None]
  - NASOPHARYNGITIS [None]
